FAERS Safety Report 10408984 (Version 2)
Quarter: 2014Q3

REPORT INFORMATION
  Report Type: Spontaneous
  Country: FI (occurrence: FI)
  Receive Date: 20140826
  Receipt Date: 20140917
  Transmission Date: 20150326
  Serious: Yes (Other)
  Sender: FDA-Public Use
  Company Number: FI-AMGEN-FINSP2014063572

PATIENT
  Age: 71 Year
  Sex: Female

DRUGS (3)
  1. BURANA [Concomitant]
     Active Substance: IBUPROFEN
  2. PROLIA [Suspect]
     Active Substance: DENOSUMAB
     Indication: OSTEOPOROSIS
     Dosage: UNK
     Route: 065
     Dates: start: 201311
  3. CEREBRAIN [Concomitant]

REACTIONS (18)
  - Ear pain [Unknown]
  - Rheumatoid arthritis [Unknown]
  - Bone pain [Unknown]
  - Headache [Unknown]
  - Dysphagia [Unknown]
  - Joint swelling [Unknown]
  - Balance disorder [Unknown]
  - Mobility decreased [Unknown]
  - Nuchal rigidity [Unknown]
  - Abasia [Unknown]
  - Arthralgia [Unknown]
  - Groin pain [Recovering/Resolving]
  - Limb deformity [Unknown]
  - Pain in jaw [Unknown]
  - Sleep disorder due to a general medical condition [Unknown]
  - Tongue discolouration [Unknown]
  - Gait disturbance [Unknown]
  - Pain in extremity [Unknown]

NARRATIVE: CASE EVENT DATE: 201409
